FAERS Safety Report 7578118-4 (Version None)
Quarter: 2011Q2

REPORT INFORMATION
  Report Type: 
  Country: None (occurrence: None)
  Receive Date: 20110628
  Receipt Date: 20110617
  Transmission Date: 20111010
  Serious: Yes (Disabling, Other)
  Sender: FDA-Public Use
  Company Number: US-SHIRE-SPV1-2011-00450

PATIENT
  Sex: Male
  Weight: 42.63 kg

DRUGS (1)
  1. VYVANSE [Suspect]
     Indication: ATTENTION DEFICIT/HYPERACTIVITY DISORDER
     Dosage: 30 MG, 1X/DAY:QD
     Dates: start: 20110305, end: 20110306

REACTIONS (5)
  - PSYCHOTIC BEHAVIOUR [None]
  - ANGER [None]
  - SUICIDAL IDEATION [None]
  - HALLUCINATION, VISUAL [None]
  - FLAT AFFECT [None]
